FAERS Safety Report 4581058-6 (Version None)
Quarter: 2005Q1

REPORT INFORMATION
  Report Type: 
  Country: None (occurrence: None)
  Receive Date: 20050127
  Receipt Date: 20041206
  Transmission Date: 20050727
  Serious: No
  Sender: FDA-Public Use
  Company Number: US_0411108555

PATIENT
  Age: 17 Year
  Sex: Male

DRUGS (3)
  1. STRATTERA [Suspect]
     Dosage: 80 MG DAY
     Dates: start: 20041101
  2. SEROQUEL [Concomitant]
  3. NEURONTIN [Concomitant]

REACTIONS (1)
  - ABNORMAL BEHAVIOUR [None]
